FAERS Safety Report 5247017-5 (Version None)
Quarter: 2007Q1

REPORT INFORMATION
  Report Type: 
  Country: None (occurrence: None)
  Receive Date: 20070226
  Receipt Date: 20070219
  Transmission Date: 20070707
  Serious: Yes (Other)
  Sender: FDA-Public Use
  Company Number: GB-GLAXOSMITHKLINE-B0459021A

PATIENT
  Sex: Female

DRUGS (3)
  1. SEROXAT [Suspect]
     Indication: DRUG USE FOR UNKNOWN INDICATION
     Route: 048
     Dates: start: 20060101
  2. QUETIAPINE FUMARATE [Concomitant]
  3. CLONAZEPAM [Concomitant]

REACTIONS (43)
  - ABNORMAL DREAMS [None]
  - ACUTE STRESS DISORDER [None]
  - AFFECT LABILITY [None]
  - AGITATION [None]
  - ANXIETY [None]
  - BLOOD DISORDER [None]
  - BLOOD PRESSURE FLUCTUATION [None]
  - CONFUSIONAL STATE [None]
  - CONSTIPATION [None]
  - DIARRHOEA [None]
  - DIZZINESS [None]
  - DRUG WITHDRAWAL SYNDROME [None]
  - DRY MOUTH [None]
  - ECCHYMOSIS [None]
  - EYE DISORDER [None]
  - GASTROINTESTINAL DISORDER [None]
  - HAEMORRHAGIC DISORDER [None]
  - HEADACHE [None]
  - HYPERHIDROSIS [None]
  - INAPPROPRIATE SCHEDULE OF DRUG ADMINISTRATION [None]
  - IRRITABILITY [None]
  - LYMPHATIC DISORDER [None]
  - MUSCLE CONTRACTIONS INVOLUNTARY [None]
  - MYDRIASIS [None]
  - NAUSEA [None]
  - NERVOUS SYSTEM DISORDER [None]
  - OVERDOSE [None]
  - PALPITATIONS [None]
  - PARAESTHESIA [None]
  - PERSONALITY DISORDER [None]
  - PSYCHOTIC DISORDER [None]
  - PYREXIA [None]
  - SENSORY DISTURBANCE [None]
  - SKIN DISORDER [None]
  - SLEEP DISORDER [None]
  - SUICIDAL BEHAVIOUR [None]
  - SUICIDAL IDEATION [None]
  - SUICIDE ATTEMPT [None]
  - TACHYCARDIA [None]
  - TREMOR [None]
  - VISION BLURRED [None]
  - VISUAL DISTURBANCE [None]
  - VOMITING [None]
